FAERS Safety Report 21988910 (Version 1)
Quarter: 2023Q1

REPORT INFORMATION
  Report Type: Spontaneous
  Country: US (occurrence: US)
  Receive Date: 20230214
  Receipt Date: 20230214
  Transmission Date: 20230417
  Serious: No
  Sender: FDA-Public Use
  Company Number: US-AUROBINDO-AUR-APL-2022-043503

PATIENT
  Age: 86 Year
  Sex: Female
  Weight: 86 kg

DRUGS (1)
  1. FAMOTIDINE [Suspect]
     Active Substance: FAMOTIDINE
     Indication: Dyspepsia
     Dosage: 1 DOSAGE FORM, TWO TIMES A DAY (ONCE IN THE MORNING AND ONCE IN THE NIGHT)
     Route: 065

REACTIONS (1)
  - Throat irritation [Not Recovered/Not Resolved]
